FAERS Safety Report 18950378 (Version 1)
Quarter: 2021Q1

REPORT INFORMATION
  Report Type: Spontaneous
  Country: US (occurrence: US)
  Receive Date: 20210228
  Receipt Date: 20210228
  Transmission Date: 20210420
  Serious: No
  Sender: FDA-Public Use
  Company Number: US-ROCHE-2731885

PATIENT
  Sex: Female
  Weight: 44.04 kg

DRUGS (1)
  1. XOLAIR [Suspect]
     Active Substance: OMALIZUMAB
     Indication: CHRONIC SPONTANEOUS URTICARIA
     Dosage: ONGOING: YES?150 MG IN EACH ARM.
     Route: 058

REACTIONS (14)
  - Anxiety [Unknown]
  - Pain [Unknown]
  - Urticaria [Unknown]
  - Mass [Unknown]
  - Off label use [Unknown]
  - Pruritus [Unknown]
  - Contusion [Unknown]
  - Discomfort [Unknown]
  - Intentional product misuse [Unknown]
  - Medication error [Unknown]
  - Stress [Unknown]
  - Rash papular [Unknown]
  - Injection site pain [Unknown]
  - Hot flush [Unknown]
